FAERS Safety Report 7509265-0 (Version None)
Quarter: 2011Q2

REPORT INFORMATION
  Report Type: 
  Country: None (occurrence: None)
  Receive Date: 20110527
  Receipt Date: 20110519
  Transmission Date: 20111010
  Serious: Yes (Death, Hospitalization, Other)
  Sender: FDA-Public Use
  Company Number: US-ROCHE-768665

PATIENT
  Age: 75 Year
  Sex: Female
  Weight: 72.9 kg

DRUGS (14)
  1. VALPROATE SODIUM [Concomitant]
  2. CALCIUM CARBONATE [Concomitant]
  3. LOVENOX [Concomitant]
  4. FENTANYL [Concomitant]
  5. KEPPRA [Concomitant]
  6. SEROQUEL [Concomitant]
  7. TEMOZOLOMIDE [Suspect]
     Indication: GLIOBLASTOMA MULTIFORME
     Dosage: LAST DOSE PRIO TO SAE: 14 MARCH 2011. TOTAL DOSE: 5180 MG, 150-200 MG/M2 ON DAYS 1-5
     Route: 065
     Dates: start: 20110207
  8. ZOLPIDEM [Concomitant]
  9. LORAZEPAM [Concomitant]
  10. NORCO [Concomitant]
  11. ZOFRAN [Concomitant]
  12. PRILOSEC [Concomitant]
  13. BLINDED BEVACIZUMAB [Suspect]
     Indication: GLIOBLASTOMA MULTIFORME
     Dosage: LAST DOSE PRIO TO SAE: 01 MARCH 2011.
     Route: 042
     Dates: start: 20110207
  14. HALOPERIDOL [Concomitant]

REACTIONS (9)
  - ABDOMINAL PAIN [None]
  - LYMPHOCYTE COUNT [None]
  - MUSCULAR WEAKNESS [None]
  - WHITE BLOOD CELL COUNT DECREASED [None]
  - DEATH [None]
  - NEUTROPHIL COUNT DECREASED [None]
  - FATIGUE [None]
  - ENCEPHALOPATHY [None]
  - PLATELET COUNT DECREASED [None]
